FAERS Safety Report 7639284-5 (Version None)
Quarter: 2011Q3

REPORT INFORMATION
  Report Type: 
  Country: None (occurrence: None)
  Receive Date: 20110727
  Receipt Date: 20110721
  Transmission Date: 20111222
  Serious: Yes (Hospitalization, Disabling, Other)
  Sender: FDA-Public Use
  Company Number: US-MERCK-1103USA00412

PATIENT
  Age: 40 Year
  Sex: Female
  Weight: 60 kg

DRUGS (10)
  1. FOSAMAX [Suspect]
     Indication: OSTEOPENIA
     Route: 048
     Dates: start: 20050101, end: 20070401
  2. FOSAMAX PLUS D [Suspect]
     Indication: OSTEOPOROSIS
     Route: 048
  3. ACTONEL [Suspect]
     Indication: OSTEOPENIA
     Route: 048
     Dates: start: 20030501
  4. CYMBALTA [Concomitant]
     Indication: DEPRESSION
     Route: 065
     Dates: start: 20030101
  5. BONIVA [Suspect]
     Indication: OSTEOPENIA
     Route: 048
     Dates: start: 20070101, end: 20080101
  6. FOSAMAX PLUS D [Suspect]
     Indication: OSTEOPENIA
     Route: 048
  7. FOSAMAX [Suspect]
     Indication: OSTEOPOROSIS
     Route: 048
     Dates: start: 20050101, end: 20070401
  8. ACTONEL [Suspect]
     Indication: OSTEOPOROSIS
     Route: 048
     Dates: start: 20030501
  9. HORMONES (UNSPECIFIED) [Concomitant]
     Indication: HORMONE REPLACEMENT THERAPY
     Route: 065
  10. BONIVA [Suspect]
     Indication: OSTEOPOROSIS
     Route: 048
     Dates: start: 20070101, end: 20080101

REACTIONS (29)
  - MUSCULOSKELETAL PAIN [None]
  - OTITIS MEDIA [None]
  - FALL [None]
  - EPICONDYLITIS [None]
  - ACUTE MYOCARDIAL INFARCTION [None]
  - ATROPHY [None]
  - TOOTH LOSS [None]
  - TOOTH FRACTURE [None]
  - SYNOVIAL CYST [None]
  - CONTUSION [None]
  - DENTAL CARIES [None]
  - PAIN IN EXTREMITY [None]
  - ARTERIOSCLEROSIS CORONARY ARTERY [None]
  - PERIPHERAL VASCULAR DISORDER [None]
  - VOMITING [None]
  - MUSCLE INJURY [None]
  - BONE LOSS [None]
  - BRONCHITIS [None]
  - OSTEOARTHRITIS [None]
  - DIZZINESS [None]
  - HYPERTENSION [None]
  - OTITIS EXTERNA [None]
  - VERTIGO [None]
  - NAUSEA [None]
  - OSTEONECROSIS OF JAW [None]
  - BLOOD CHOLESTEROL INCREASED [None]
  - TENOSYNOVITIS [None]
  - OESOPHAGITIS [None]
  - INFECTION [None]
